FAERS Safety Report 12661200 (Version 2)
Quarter: 2016Q3

REPORT INFORMATION
  Report Type: Spontaneous
  Country: US (occurrence: US)
  Receive Date: 20160817
  Receipt Date: 20160901
  Transmission Date: 20161109
  Serious: No
  Sender: FDA-Public Use
  Company Number: US-RELYPSA-RLY2016000668

PATIENT
  Sex: Female

DRUGS (11)
  1. CALCITRIOL. [Concomitant]
     Active Substance: CALCITRIOL
  2. HYDROXYCHLOROQUINE SULFATE. [Concomitant]
     Active Substance: HYDROXYCHLOROQUINE SULFATE
  3. METOPROLOL TARTRATE. [Concomitant]
     Active Substance: METOPROLOL TARTRATE
  4. OMEPRAZOLE. [Concomitant]
     Active Substance: OMEPRAZOLE
  5. DIOVAN [Concomitant]
     Active Substance: VALSARTAN
  6. PREDNISONE. [Concomitant]
     Active Substance: PREDNISONE
  7. TYLENOL EXTRA STRENGTH [Concomitant]
     Active Substance: ACETAMINOPHEN
  8. VITAMIN B12 [Concomitant]
     Active Substance: CYANOCOBALAMIN
  9. CYANOCOBALAMIN. [Concomitant]
     Active Substance: CYANOCOBALAMIN
  10. VELTASSA [Suspect]
     Active Substance: PATIROMER
     Indication: HYPERKALAEMIA
     Dosage: 8.4 G, Q.D.
     Route: 048
     Dates: start: 20160420
  11. ULORIC [Concomitant]
     Active Substance: FEBUXOSTAT

REACTIONS (1)
  - Constipation [Unknown]
